FAERS Safety Report 4300484-3 (Version None)
Quarter: 2004Q1

REPORT INFORMATION
  Report Type: 
  Country: None (occurrence: None)
  Receive Date: 20040217
  Receipt Date: 20040205
  Transmission Date: 20041129
  Serious: Yes (Hospitalization)
  Sender: FDA-Public Use
  Company Number: SE-JNJFOC-20040201604

PATIENT
  Age: 78 Year
  Sex: Female

DRUGS (3)
  1. REMINYL [Suspect]
     Indication: DEMENTIA ALZHEIMER'S TYPE
     Dosage: 12 MG, 2 IN 1 DAY, ORAL
     Route: 048
     Dates: start: 20010101, end: 20040101
  2. DICLOFENAC SODIUM [Concomitant]
  3. PARIET (RABEPRAZOLE) [Concomitant]

REACTIONS (3)
  - CONDITION AGGRAVATED [None]
  - DEMENTIA ALZHEIMER'S TYPE [None]
  - SYNCOPE [None]
